FAERS Safety Report 15088797 (Version 2)
Quarter: 2018Q3

REPORT INFORMATION
  Report Type: Spontaneous
  Country: US (occurrence: US)
  Receive Date: 20180629
  Receipt Date: 20180911
  Transmission Date: 20181010
  Serious: No
  Sender: FDA-Public Use
  Company Number: US-PFIZER INC-2018262611

PATIENT
  Age: 59 Year
  Sex: Female

DRUGS (1)
  1. METHOTREXATE SODIUM. [Suspect]
     Active Substance: METHOTREXATE SODIUM
     Dosage: 0.8 ML, WEEKLY (CC)
     Route: 058

REACTIONS (4)
  - Product use issue [Unknown]
  - Pain [Recovering/Resolving]
  - Synovitis [Not Recovered/Not Resolved]
  - Liver function test increased [Unknown]
